FAERS Safety Report 15630279 (Version 1)
Quarter: 2018Q4

REPORT INFORMATION
  Report Type: Spontaneous
  Country: US (occurrence: US)
  Receive Date: 20181117
  Receipt Date: 20181117
  Transmission Date: 20190205
  Serious: Yes (Hospitalization)
  Sender: FDA-Public Use
  Company Number: None

PATIENT
  Age: 76 Year
  Sex: Male
  Weight: 90 kg

DRUGS (9)
  1. LIPITOR [Concomitant]
     Active Substance: ATORVASTATIN CALCIUM
  2. FUROSEMIDE. [Concomitant]
     Active Substance: FUROSEMIDE
  3. VITAMIN D3 [Concomitant]
     Active Substance: CHOLECALCIFEROL
  4. MULTIVITAMIN [Concomitant]
     Active Substance: VITAMINS
  5. CARDIDOPA-LEVO [Concomitant]
  6. COREG [Concomitant]
     Active Substance: CARVEDILOL
  7. ESCITALOPRAM [Concomitant]
     Active Substance: ESCITALOPRAM OXALATE
  8. XARELTO [Concomitant]
     Active Substance: RIVAROXABAN
  9. AMANTADINE TABLET 100MG [Suspect]
     Active Substance: AMANTADINE HYDROCHLORIDE
     Indication: PARKINSON^S DISEASE
     Dosage: ?          QUANTITY:1 TABLET(S);?
     Route: 048
     Dates: start: 20180508, end: 20180515

REACTIONS (8)
  - Fall [None]
  - Hallucination [None]
  - Seizure [None]
  - Muscle spasms [None]
  - Loss of personal independence in daily activities [None]
  - Paranoia [None]
  - Rib fracture [None]
  - Confusional state [None]

NARRATIVE: CASE EVENT DATE: 20180519
